FAERS Safety Report 8427414-7 (Version None)
Quarter: 2012Q2

REPORT INFORMATION
  Report Type: 
  Country: None (occurrence: None)
  Receive Date: 20120611
  Receipt Date: 20120601
  Transmission Date: 20120825
  Serious: Yes (Other)
  Sender: FDA-Public Use
  Company Number: AT-BRISTOL-MYERS SQUIBB COMPANY-16576571

PATIENT
  Age: 24 Year
  Sex: Female
  Weight: 55 kg

DRUGS (10)
  1. AMPHOTERICIN B [Concomitant]
  2. NELFINAVIR MESYLATE [Suspect]
     Indication: ANTIRETROVIRAL THERAPY
     Dates: start: 20020701, end: 20021201
  3. MORPHINE [Concomitant]
     Dosage: FILM COATED TABS
  4. OXAZEPAM [Concomitant]
  5. INDINIVIR SULFATE [Suspect]
     Indication: ANTIRETROVIRAL THERAPY
     Dates: start: 19990801
  6. NEVIRAPINE [Suspect]
     Indication: ANTIRETROVIRAL THERAPY
     Dosage: INTERRUPT ON MAY2000
     Route: 048
     Dates: start: 19991101
  7. RITONAVIR [Suspect]
     Indication: ANTIRETROVIRAL THERAPY
     Dates: start: 19990801
  8. PASPERTIN [Concomitant]
  9. EPIVIR [Suspect]
     Indication: ANTIRETROVIRAL THERAPY
     Dosage: INTERRUPT ON DEC2004
     Route: 048
     Dates: start: 19990801
  10. ZERIT [Suspect]
     Indication: ANTIRETROVIRAL THERAPY
     Dosage: INTERRUPT ON 31DEC2002 ZERIT 30MG
     Route: 048
     Dates: start: 19990803

REACTIONS (4)
  - HEPATITIS C [None]
  - CACHEXIA [None]
  - CERVICAL DYSPLASIA [None]
  - THROMBOCYTOPENIA [None]
